FAERS Safety Report 4548914-6 (Version None)
Quarter: 2004Q4

REPORT INFORMATION
  Report Type: 
  Country: None (occurrence: None)
  Receive Date: 20041227
  Receipt Date: 20041122
  Transmission Date: 20050328
  Serious: No
  Sender: FDA-Public Use
  Company Number: 04P-163-0281190-00

PATIENT
  Age: 36 Year
  Sex: Female
  Weight: 74.8435 kg

DRUGS (6)
  1. HUMIRA [Suspect]
     Indication: RHEUMATOID ARTHRITIS
     Dosage: 40 MG, 1 IN 2 WK, SUBCUTANEOUS
     Route: 058
     Dates: start: 20041010
  2. METHOTREXATE [Concomitant]
  3. PREDNISONE [Concomitant]
  4. FOLIC ACID [Concomitant]
  5. LEVOTHYROXINE SODIUM [Concomitant]
  6. ANOVLAR [Concomitant]

REACTIONS (6)
  - DYSPNOEA [None]
  - INJECTION SITE BURNING [None]
  - INJECTION SITE PAIN [None]
  - OROPHARYNGEAL SWELLING [None]
  - PRURITUS [None]
  - RASH [None]
